FAERS Safety Report 12305762 (Version 2)
Quarter: 2016Q3

REPORT INFORMATION
  Report Type: Report from Study
  Country: US (occurrence: US)
  Receive Date: 20160426
  Receipt Date: 20160720
  Transmission Date: 20161109
  Serious: Yes (Death, Hospitalization)
  Sender: FDA-Public Use
  Company Number: US-ACTELION-A-US2015-118192

PATIENT
  Age: 90 Year
  Sex: Female

DRUGS (2)
  1. REVATIO [Concomitant]
     Active Substance: SILDENAFIL CITRATE
  2. OPSUMIT [Suspect]
     Active Substance: MACITENTAN
     Indication: PULMONARY HYPERTENSION
     Dosage: 10 MG, QD
     Route: 048
     Dates: start: 20150330, end: 20160410

REACTIONS (4)
  - Pulmonary arterial hypertension [Unknown]
  - Right ventricular failure [Unknown]
  - Musculoskeletal pain [Unknown]
  - Death [Fatal]

NARRATIVE: CASE EVENT DATE: 20160410
